FAERS Safety Report 4768404-5 (Version None)
Quarter: 2005Q3

REPORT INFORMATION
  Report Type: 
  Country: None (occurrence: None)
  Receive Date: 20050914
  Receipt Date: 20050907
  Transmission Date: 20060218
  Serious: Yes (Hospitalization)
  Sender: FDA-Public Use
  Company Number: 200512015DE

PATIENT
  Age: 60 Year
  Sex: Female

DRUGS (3)
  1. NAGEL BATRAFEN [Suspect]
     Indication: ONYCHOMYCOSIS
  2. ASPIRIN [Concomitant]
  3. REMIFEMIN [Concomitant]

REACTIONS (6)
  - CIRCULATORY COLLAPSE [None]
  - DYSPNOEA [None]
  - HEART RATE INCREASED [None]
  - LOSS OF CONSCIOUSNESS [None]
  - POOR PERIPHERAL CIRCULATION [None]
  - SYNCOPE [None]
